FAERS Safety Report 5976562-X (Version None)
Quarter: 2008Q4

REPORT INFORMATION
  Report Type: 
  Country: None (occurrence: None)
  Receive Date: 20081125
  Receipt Date: 20081112
  Transmission Date: 20090506
  Serious: Yes (Hospitalization)
  Sender: FDA-Public Use
  Company Number: JPI-P-005369

PATIENT
  Age: 66 Year
  Sex: Male
  Weight: 97.5234 kg

DRUGS (3)
  1. XYREM [Suspect]
     Indication: SLEEP DISORDER
     Dosage: 4.5 GM (2.25 GM, 2 IN 1 D),ORAL;    7 GM (3.5 GM,2 IN 1 D),ORAL;  7.5 GM (3.75 GM, 2 IN 1 D),ORAL
     Route: 048
     Dates: start: 20080801, end: 20081001
  2. XYREM [Suspect]
     Indication: SLEEP DISORDER
     Dosage: 4.5 GM (2.25 GM, 2 IN 1 D),ORAL;    7 GM (3.5 GM,2 IN 1 D),ORAL;  7.5 GM (3.75 GM, 2 IN 1 D),ORAL
     Route: 048
     Dates: start: 20081102, end: 20081101
  3. XYREM [Suspect]
     Indication: SLEEP DISORDER
     Dosage: 4.5 GM (2.25 GM, 2 IN 1 D),ORAL;    7 GM (3.5 GM,2 IN 1 D),ORAL;  7.5 GM (3.75 GM, 2 IN 1 D),ORAL
     Route: 048
     Dates: start: 20081101

REACTIONS (5)
  - ABNORMAL DREAMS [None]
  - EXOSTOSIS [None]
  - INTERVERTEBRAL DISC PROTRUSION [None]
  - MIDDLE INSOMNIA [None]
  - NECK PAIN [None]
